FAERS Safety Report 14131632 (Version 2)
Quarter: 2017Q4

REPORT INFORMATION
  Report Type: Spontaneous
  Country: KR (occurrence: KR)
  Receive Date: 20171026
  Receipt Date: 20171108
  Transmission Date: 20180321
  Serious: Yes (Other)
  Sender: FDA-Public Use
  Company Number: KR-REGENERON PHARMACEUTICALS, INC.-2017-25171

PATIENT

DRUGS (2)
  1. EYLEA [Suspect]
     Active Substance: AFLIBERCEPT
     Indication: PRODUCT USED FOR UNKNOWN INDICATION
     Dosage: OU, FIRST INJECTION
     Route: 031
     Dates: start: 20170309, end: 20170309
  2. EYLEA [Suspect]
     Active Substance: AFLIBERCEPT
     Dosage: OU, SECOND  INJECTION
     Route: 031
     Dates: start: 20170525, end: 20170525

REACTIONS (2)
  - Intraocular pressure test abnormal [Unknown]
  - Visual acuity reduced [Unknown]

NARRATIVE: CASE EVENT DATE: 20170328
